FAERS Safety Report 6910835-9 (Version None)
Quarter: 2010Q3

REPORT INFORMATION
  Report Type: 
  Country: None (occurrence: None)
  Receive Date: 20100806
  Receipt Date: 20100802
  Transmission Date: 20110219
  Serious: Yes (Other)
  Sender: FDA-Public Use
  Company Number: US-GENZYME-FABR-1001426

PATIENT

DRUGS (3)
  1. FABRAZYME [Suspect]
     Indication: FABRY'S DISEASE
     Dosage: 35 MG, Q4W
     Route: 042
  2. FABRAZYME [Suspect]
     Dosage: 35 MG, Q2W
     Route: 042
  3. FABRAZYME [Suspect]
     Dosage: 1.0 MG/KG, Q2W
     Route: 042
     Dates: start: 20030801, end: 20090101

REACTIONS (3)
  - BLOOD URIC ACID INCREASED [None]
  - GOUT [None]
  - RENAL FAILURE CHRONIC [None]
